FAERS Safety Report 22204170 (Version 6)
Quarter: 2023Q4

REPORT INFORMATION
  Report Type: Spontaneous
  Country: US (occurrence: US)
  Receive Date: 20230412
  Receipt Date: 20231025
  Transmission Date: 20240110
  Serious: No
  Sender: FDA-Public Use
  Company Number: US-PFIZER INC-PV202300065396

PATIENT
  Age: 71 Year
  Weight: 57.143 kg

DRUGS (3)
  1. IBRANCE [Suspect]
     Active Substance: PALBOCICLIB
     Indication: Breast cancer metastatic
     Dosage: 125 MG, DAILY
     Dates: start: 202207
  2. FULVESTRANT [Concomitant]
     Active Substance: FULVESTRANT
     Dosage: 2 INJECTIONS EVERY 28 DAYS
  3. TYLENOL [Concomitant]
     Active Substance: ACETAMINOPHEN

REACTIONS (5)
  - Nasopharyngitis [Recovering/Resolving]
  - Malaise [Recovered/Resolved]
  - Blood test abnormal [Recovered/Resolved]
  - White blood cell count decreased [Recovered/Resolved]
  - Neoplasm progression [Unknown]

NARRATIVE: CASE EVENT DATE: 20230601
